FAERS Safety Report 21561346 (Version 5)
Quarter: 2024Q4

REPORT INFORMATION
  Report Type: Spontaneous
  Country: CA (occurrence: CA)
  Receive Date: 20221107
  Receipt Date: 20241128
  Transmission Date: 20250114
  Serious: Yes (Death, Other)
  Sender: BRISTOL-MYERS SQUIBB COMPANY
  Company Number: CA-BRISTOL-MYERS SQUIBB COMPANY-2022-133512

PATIENT
  Age: 43 Year
  Sex: Female
  Weight: 97 kg

DRUGS (701)
  1. ORENCIA [Suspect]
     Active Substance: ABATACEPT
     Indication: Rheumatoid arthritis
     Route: 058
  2. ORENCIA [Suspect]
     Active Substance: ABATACEPT
     Route: 058
  3. ORENCIA [Suspect]
     Active Substance: ABATACEPT
     Route: 058
  4. ORENCIA [Suspect]
     Active Substance: ABATACEPT
     Route: 058
  5. ORENCIA [Suspect]
     Active Substance: ABATACEPT
     Route: 058
  6. ORENCIA [Suspect]
     Active Substance: ABATACEPT
     Indication: Rheumatoid arthritis
     Route: 042
  7. ORENCIA [Suspect]
     Active Substance: ABATACEPT
     Indication: Psoriatic arthropathy
     Route: 041
  8. ORENCIA [Suspect]
     Active Substance: ABATACEPT
     Route: 042
  9. ORENCIA [Suspect]
     Active Substance: ABATACEPT
     Route: 042
  10. ORENCIA [Suspect]
     Active Substance: ABATACEPT
     Route: 042
  11. ORENCIA [Suspect]
     Active Substance: ABATACEPT
     Route: 042
  12. ORENCIA [Suspect]
     Active Substance: ABATACEPT
     Route: 042
  13. ORENCIA [Suspect]
     Active Substance: ABATACEPT
     Indication: Rheumatoid arthritis
  14. ORENCIA [Suspect]
     Active Substance: ABATACEPT
  15. ORENCIA [Suspect]
     Active Substance: ABATACEPT
  16. ORENCIA [Suspect]
     Active Substance: ABATACEPT
  17. ORENCIA [Suspect]
     Active Substance: ABATACEPT
  18. ORENCIA [Suspect]
     Active Substance: ABATACEPT
  19. ORENCIA [Suspect]
     Active Substance: ABATACEPT
  20. ORENCIA [Suspect]
     Active Substance: ABATACEPT
     Route: 048
  21. ORENCIA [Suspect]
     Active Substance: ABATACEPT
     Indication: Rheumatoid arthritis
     Route: 015
  22. ORENCIA [Suspect]
     Active Substance: ABATACEPT
     Indication: Psoriatic arthropathy
     Route: 058
  23. ORENCIA [Suspect]
     Active Substance: ABATACEPT
  24. ORENCIA [Suspect]
     Active Substance: ABATACEPT
     Route: 042
  25. ORENCIA [Suspect]
     Active Substance: ABATACEPT
  26. ORENCIA [Suspect]
     Active Substance: ABATACEPT
     Route: 058
  27. ORENCIA [Suspect]
     Active Substance: ABATACEPT
     Route: 042
  28. TRIAMCINOLONE ACETONIDE [Suspect]
     Active Substance: TRIAMCINOLONE ACETONIDE
     Indication: Rheumatoid arthritis
     Dosage: SUSPENSION INTRA- ARTICULAR
  29. CALCIUM CARBONATE [Concomitant]
     Active Substance: CALCIUM CARBONATE
     Indication: Product used for unknown indication
  30. CALCIUM CARBONATE [Concomitant]
     Active Substance: CALCIUM CARBONATE
  31. ACETAMINOPHEN\OXYCODONE HYDROCHLORIDE [Concomitant]
     Active Substance: ACETAMINOPHEN\OXYCODONE HYDROCHLORIDE
     Indication: Product used for unknown indication
  32. ACETAMINOPHEN [Concomitant]
     Active Substance: ACETAMINOPHEN
     Indication: Rheumatoid arthritis
  33. ACETAMINOPHEN [Concomitant]
     Active Substance: ACETAMINOPHEN
     Route: 048
  34. ACETAMINOPHEN [Concomitant]
     Active Substance: ACETAMINOPHEN
  35. ACETAMINOPHEN [Concomitant]
     Active Substance: ACETAMINOPHEN
  36. ACETAMINOPHEN [Concomitant]
     Active Substance: ACETAMINOPHEN
  37. ACETAMINOPHEN [Concomitant]
     Active Substance: ACETAMINOPHEN
  38. ACTEMRA [Concomitant]
     Active Substance: TOCILIZUMAB
     Indication: Rheumatoid arthritis
     Route: 042
  39. ACTEMRA [Concomitant]
     Active Substance: TOCILIZUMAB
     Route: 042
  40. ACTEMRA [Concomitant]
     Active Substance: TOCILIZUMAB
     Route: 058
  41. ACTEMRA [Concomitant]
     Active Substance: TOCILIZUMAB
     Route: 042
  42. ACTEMRA [Concomitant]
     Active Substance: TOCILIZUMAB
     Route: 048
  43. ACTEMRA [Concomitant]
     Active Substance: TOCILIZUMAB
     Route: 042
  44. ACTEMRA [Concomitant]
     Active Substance: TOCILIZUMAB
     Route: 058
  45. ACTEMRA [Concomitant]
     Active Substance: TOCILIZUMAB
     Route: 058
  46. ACTEMRA [Concomitant]
     Active Substance: TOCILIZUMAB
     Route: 061
  47. ACTEMRA [Concomitant]
     Active Substance: TOCILIZUMAB
  48. ACTEMRA [Concomitant]
     Active Substance: TOCILIZUMAB
     Route: 042
  49. ACTEMRA [Concomitant]
     Active Substance: TOCILIZUMAB
     Route: 042
  50. ACTEMRA [Concomitant]
     Active Substance: TOCILIZUMAB
     Route: 058
  51. ACTEMRA [Concomitant]
     Active Substance: TOCILIZUMAB
     Route: 048
  52. ACTEMRA [Concomitant]
     Active Substance: TOCILIZUMAB
  53. ACTEMRA [Concomitant]
     Active Substance: TOCILIZUMAB
  54. ACTEMRA [Concomitant]
     Active Substance: TOCILIZUMAB
     Route: 042
  55. ADALIMUMAB [Concomitant]
     Active Substance: ADALIMUMAB
     Indication: Psoriatic arthropathy
     Dosage: SOLUTION SUBCUTANEOUS
     Route: 058
  56. ADALIMUMAB [Concomitant]
     Active Substance: ADALIMUMAB
     Indication: Rheumatoid arthritis
     Dosage: SOLUTION SUBCUTANEOUS
     Route: 048
  57. ADALIMUMAB [Concomitant]
     Active Substance: ADALIMUMAB
     Route: 058
  58. ADALIMUMAB [Concomitant]
     Active Substance: ADALIMUMAB
     Route: 058
  59. ADALIMUMAB [Concomitant]
     Active Substance: ADALIMUMAB
  60. ALENDRONATE [Concomitant]
     Active Substance: ALENDRONATE SODIUM
     Indication: Rheumatoid arthritis
  61. PREDNISONE [Concomitant]
     Active Substance: PREDNISONE
     Indication: Rheumatoid arthritis
     Route: 048
  62. PREDNISONE [Concomitant]
     Active Substance: PREDNISONE
  63. PREDNISONE [Concomitant]
     Active Substance: PREDNISONE
  64. PREDNISONE [Concomitant]
     Active Substance: PREDNISONE
  65. PREDNISONE [Concomitant]
     Active Substance: PREDNISONE
  66. PREDNISONE [Concomitant]
     Active Substance: PREDNISONE
     Route: 048
  67. PREDNISONE [Concomitant]
     Active Substance: PREDNISONE
  68. PREDNISONE [Concomitant]
     Active Substance: PREDNISONE
     Route: 048
  69. PREDNISONE [Concomitant]
     Active Substance: PREDNISONE
  70. PREDNISONE [Concomitant]
     Active Substance: PREDNISONE
  71. PREDNISONE [Concomitant]
     Active Substance: PREDNISONE
     Route: 048
  72. PREDNISONE [Concomitant]
     Active Substance: PREDNISONE
     Route: 048
  73. PREDNISONE [Concomitant]
     Active Substance: PREDNISONE
  74. PREDNISONE [Concomitant]
     Active Substance: PREDNISONE
     Route: 042
  75. ARAVA [Concomitant]
     Active Substance: LEFLUNOMIDE
     Indication: Rheumatoid arthritis
     Route: 048
  76. ARAVA [Concomitant]
     Active Substance: LEFLUNOMIDE
  77. ARAVA [Concomitant]
     Active Substance: LEFLUNOMIDE
     Route: 048
  78. ARAVA [Concomitant]
     Active Substance: LEFLUNOMIDE
     Route: 048
  79. ARAVA [Concomitant]
     Active Substance: LEFLUNOMIDE
  80. ARAVA [Concomitant]
     Active Substance: LEFLUNOMIDE
  81. ARAVA [Concomitant]
     Active Substance: LEFLUNOMIDE
     Route: 048
  82. ARAVA [Concomitant]
     Active Substance: LEFLUNOMIDE
     Route: 048
  83. ASCORBIC ACID [Concomitant]
     Active Substance: ASCORBIC ACID
     Indication: Product used for unknown indication
  84. ASCORBIC ACID [Concomitant]
     Active Substance: ASCORBIC ACID
     Indication: Product used for unknown indication
  85. ACETAMINOPHEN [Concomitant]
     Active Substance: ACETAMINOPHEN
     Indication: Product used for unknown indication
  86. ATIVAN [Concomitant]
     Active Substance: LORAZEPAM
     Indication: Product used for unknown indication
  87. CALCIUM GLUCONATE [Concomitant]
     Active Substance: CALCIUM GLUCONATE
     Indication: Product used for unknown indication
  88. CELEBREX [Concomitant]
     Active Substance: CELECOXIB
     Indication: Arthritis
     Route: 048
  89. CELEBREX [Concomitant]
     Active Substance: CELECOXIB
  90. CELEBREX [Concomitant]
     Active Substance: CELECOXIB
  91. CELEBREX [Concomitant]
     Active Substance: CELECOXIB
  92. CELEBREX [Concomitant]
     Active Substance: CELECOXIB
     Route: 048
  93. CETIRIZINE [Concomitant]
     Active Substance: CETIRIZINE HYDROCHLORIDE
     Indication: Rheumatoid arthritis
     Route: 048
  94. CETIRIZINE [Concomitant]
     Active Substance: CETIRIZINE HYDROCHLORIDE
  95. CETIRIZINE [Concomitant]
     Active Substance: CETIRIZINE HYDROCHLORIDE
  96. CETIRIZINE [Concomitant]
     Active Substance: CETIRIZINE HYDROCHLORIDE
  97. CETIRIZINE [Concomitant]
     Active Substance: CETIRIZINE HYDROCHLORIDE
  98. CETIRIZINE [Concomitant]
     Active Substance: CETIRIZINE HYDROCHLORIDE
  99. CETIRIZINE [Concomitant]
     Active Substance: CETIRIZINE HYDROCHLORIDE
  100. CETIRIZINE [Concomitant]
     Active Substance: CETIRIZINE HYDROCHLORIDE
  101. CETIRIZINE [Concomitant]
     Active Substance: CETIRIZINE HYDROCHLORIDE
  102. CETIRIZINE [Concomitant]
     Active Substance: CETIRIZINE HYDROCHLORIDE
  103. CETIRIZINE [Concomitant]
     Active Substance: CETIRIZINE HYDROCHLORIDE
  104. CETIRIZINE [Concomitant]
     Active Substance: CETIRIZINE HYDROCHLORIDE
     Route: 048
  105. CETIRIZINE [Concomitant]
     Active Substance: CETIRIZINE HYDROCHLORIDE
     Route: 048
  106. CETIRIZINE [Concomitant]
     Active Substance: CETIRIZINE HYDROCHLORIDE
     Route: 048
  107. CHLORAPREP [Concomitant]
     Active Substance: CHLORHEXIDINE GLUCONATE\ISOPROPYL ALCOHOL
     Indication: Product used for unknown indication
     Route: 061
  108. CHLORAPREP [Concomitant]
     Active Substance: CHLORHEXIDINE GLUCONATE\ISOPROPYL ALCOHOL
     Route: 048
  109. CHLORAPREP [Concomitant]
     Active Substance: CHLORHEXIDINE GLUCONATE\ISOPROPYL ALCOHOL
  110. CHOLECALCIFEROL [Concomitant]
     Active Substance: CHOLECALCIFEROL
     Indication: Product used for unknown indication
  111. CIMZIA [Concomitant]
     Active Substance: CERTOLIZUMAB PEGOL
     Indication: Rheumatoid arthritis
  112. CIMZIA [Concomitant]
     Active Substance: CERTOLIZUMAB PEGOL
     Indication: Psoriasis
     Route: 058
  113. CIMZIA [Concomitant]
     Active Substance: CERTOLIZUMAB PEGOL
     Route: 058
  114. CODEINE [Concomitant]
     Active Substance: CODEINE
     Indication: Product used for unknown indication
  115. CORTISONE (HYDROCORTISONE) [Concomitant]
     Active Substance: HYDROCORTISONE
     Indication: Rheumatoid arthritis
     Route: 003
  116. CORTISONE (HYDROCORTISONE) [Concomitant]
     Active Substance: HYDROCORTISONE
     Route: 058
  117. CORTISONE (HYDROCORTISONE) [Concomitant]
     Active Substance: HYDROCORTISONE
     Route: 048
  118. CORTISONE (HYDROCORTISONE) [Concomitant]
     Active Substance: HYDROCORTISONE
     Route: 061
  119. CORTISONE (HYDROCORTISONE) [Concomitant]
     Active Substance: HYDROCORTISONE
     Route: 048
  120. CORTISONE (HYDROCORTISONE) [Concomitant]
     Active Substance: HYDROCORTISONE
     Route: 058
  121. CORTISONE (HYDROCORTISONE) [Concomitant]
     Active Substance: HYDROCORTISONE
     Route: 003
  122. CORTISONE (HYDROCORTISONE) [Concomitant]
     Active Substance: HYDROCORTISONE
  123. CORTISONE (HYDROCORTISONE) [Concomitant]
     Active Substance: HYDROCORTISONE
     Route: 048
  124. CORTISONE (HYDROCORTISONE) [Concomitant]
     Active Substance: HYDROCORTISONE
     Route: 061
  125. CORTISONE (HYDROCORTISONE) [Concomitant]
     Active Substance: HYDROCORTISONE
     Route: 061
  126. CORTISONE (HYDROCORTISONE) [Concomitant]
     Active Substance: HYDROCORTISONE
  127. CORTISONE (HYDROCORTISONE) [Concomitant]
     Active Substance: HYDROCORTISONE
  128. COSENTYX [Concomitant]
     Active Substance: SECUKINUMAB
     Indication: Psoriatic arthropathy
  129. COSENTYX [Concomitant]
     Active Substance: SECUKINUMAB
  130. COSENTYX [Concomitant]
     Active Substance: SECUKINUMAB
  131. COSENTYX [Concomitant]
     Active Substance: SECUKINUMAB
     Route: 048
  132. COSENTYX [Concomitant]
     Active Substance: SECUKINUMAB
     Route: 048
  133. COSENTYX [Concomitant]
     Active Substance: SECUKINUMAB
     Route: 048
  134. DESOGESTREL AND ETHINYL ESTRADIOL [Concomitant]
     Active Substance: DESOGESTREL\ETHINYL ESTRADIOL
     Indication: Product used for unknown indication
  135. DESOXIMETASONE [Concomitant]
     Active Substance: DESOXIMETASONE
     Indication: Rheumatoid arthritis
     Route: 058
  136. DESOXIMETASONE [Concomitant]
     Active Substance: DESOXIMETASONE
     Route: 048
  137. DESOXIMETASONE [Concomitant]
     Active Substance: DESOXIMETASONE
  138. DESOXIMETASONE [Concomitant]
     Active Substance: DESOXIMETASONE
  139. DESOXIMETASONE [Concomitant]
     Active Substance: DESOXIMETASONE
     Route: 048
  140. DESOXIMETASONE [Concomitant]
     Active Substance: DESOXIMETASONE
     Route: 048
  141. DESOXIMETASONE [Concomitant]
     Active Substance: DESOXIMETASONE
     Route: 058
  142. DESOXIMETASONE [Concomitant]
     Active Substance: DESOXIMETASONE
     Route: 048
  143. DESOXIMETASONE [Concomitant]
     Active Substance: DESOXIMETASONE
     Route: 048
  144. DESOXIMETASONE [Concomitant]
     Active Substance: DESOXIMETASONE
  145. DESOXIMETASONE [Concomitant]
     Active Substance: DESOXIMETASONE
     Route: 048
  146. DESOXIMETASONE [Concomitant]
     Active Substance: DESOXIMETASONE
     Route: 003
  147. DESOXIMETASONE [Concomitant]
     Active Substance: DESOXIMETASONE
     Route: 061
  148. DESOXIMETASONE [Concomitant]
     Active Substance: DESOXIMETASONE
     Route: 058
  149. DESOXIMETASONE [Concomitant]
     Active Substance: DESOXIMETASONE
     Route: 048
  150. DESOXIMETASONE [Concomitant]
     Active Substance: DESOXIMETASONE
     Route: 048
  151. DESOXIMETASONE [Concomitant]
     Active Substance: DESOXIMETASONE
     Route: 048
  152. DESOXIMETASONE [Concomitant]
     Active Substance: DESOXIMETASONE
     Route: 048
  153. DESOXIMETASONE [Concomitant]
     Active Substance: DESOXIMETASONE
  154. DESOXIMETASONE [Concomitant]
     Active Substance: DESOXIMETASONE
     Route: 061
  155. DESOXIMETASONE [Concomitant]
     Active Substance: DESOXIMETASONE
     Route: 048
  156. DESOXIMETASONE [Concomitant]
     Active Substance: DESOXIMETASONE
  157. DESOXIMETASONE [Concomitant]
     Active Substance: DESOXIMETASONE
     Route: 048
  158. DESOXIMETASONE [Concomitant]
     Active Substance: DESOXIMETASONE
  159. DESOXIMETASONE [Concomitant]
     Active Substance: DESOXIMETASONE
     Route: 003
  160. DESOXIMETASONE [Concomitant]
     Active Substance: DESOXIMETASONE
     Route: 003
  161. DESOXIMETASONE [Concomitant]
     Active Substance: DESOXIMETASONE
     Route: 042
  162. DESOXIMETASONE [Concomitant]
     Active Substance: DESOXIMETASONE
     Route: 048
  163. DESOXIMETASONE [Concomitant]
     Active Substance: DESOXIMETASONE
  164. DESOXIMETASONE [Concomitant]
     Active Substance: DESOXIMETASONE
  165. DESOXIMETASONE [Concomitant]
     Active Substance: DESOXIMETASONE
     Route: 003
  166. DESOXIMETASONE [Concomitant]
     Active Substance: DESOXIMETASONE
     Route: 048
  167. DICLOFENAC [Concomitant]
     Active Substance: DICLOFENAC
     Indication: Product used for unknown indication
  168. DICLOFENAC [Concomitant]
     Active Substance: DICLOFENAC
     Route: 047
  169. DOXYCYCLINE [Concomitant]
     Active Substance: DOXYCYCLINE
     Indication: Product used for unknown indication
  170. DOXYCYCLINE [Concomitant]
     Active Substance: DOXYCYCLINE
  171. ENBREL [Concomitant]
     Active Substance: ETANERCEPT
     Indication: Psoriatic arthropathy
     Route: 058
  172. ENBREL [Concomitant]
     Active Substance: ETANERCEPT
     Indication: Rheumatoid arthritis
     Route: 058
  173. ENBREL [Concomitant]
     Active Substance: ETANERCEPT
     Route: 058
  174. ENBREL [Concomitant]
     Active Substance: ETANERCEPT
     Route: 058
  175. ENBREL [Concomitant]
     Active Substance: ETANERCEPT
     Route: 058
  176. ENBREL [Concomitant]
     Active Substance: ETANERCEPT
     Route: 058
  177. ENBREL [Concomitant]
     Active Substance: ETANERCEPT
  178. ENBREL [Concomitant]
     Active Substance: ETANERCEPT
     Route: 058
  179. ENBREL [Concomitant]
     Active Substance: ETANERCEPT
     Route: 058
  180. ENBREL [Concomitant]
     Active Substance: ETANERCEPT
     Route: 058
  181. ENBREL [Concomitant]
     Active Substance: ETANERCEPT
     Route: 058
  182. ENBREL [Concomitant]
     Active Substance: ETANERCEPT
     Route: 058
  183. ENBREL [Concomitant]
     Active Substance: ETANERCEPT
     Route: 058
  184. ENBREL [Concomitant]
     Active Substance: ETANERCEPT
     Route: 058
  185. ENBREL [Concomitant]
     Active Substance: ETANERCEPT
  186. ERGOCALCIFEROL [Concomitant]
     Active Substance: ERGOCALCIFEROL
     Indication: Product used for unknown indication
  187. FOLIC ACID [Concomitant]
     Active Substance: FOLIC ACID
     Indication: Rheumatoid arthritis
  188. FOLIC ACID [Concomitant]
     Active Substance: FOLIC ACID
  189. FOLIC ACID [Concomitant]
     Active Substance: FOLIC ACID
  190. FOLIC ACID [Concomitant]
     Active Substance: FOLIC ACID
  191. FOLIC ACID [Concomitant]
     Active Substance: FOLIC ACID
  192. FOLIC ACID [Concomitant]
     Active Substance: FOLIC ACID
  193. FOLIC ACID [Concomitant]
     Active Substance: FOLIC ACID
     Route: 058
  194. FOLIC ACID [Concomitant]
     Active Substance: FOLIC ACID
  195. FOLIC ACID [Concomitant]
     Active Substance: FOLIC ACID
  196. FOLIC ACID [Concomitant]
     Active Substance: FOLIC ACID
  197. FOLIC ACID [Concomitant]
     Active Substance: FOLIC ACID
     Route: 048
  198. FOLIC ACID [Concomitant]
     Active Substance: FOLIC ACID
  199. FOLIC ACID [Concomitant]
     Active Substance: FOLIC ACID
     Route: 048
  200. FOLIC ACID [Concomitant]
     Active Substance: FOLIC ACID
  201. FOLIC ACID [Concomitant]
     Active Substance: FOLIC ACID
  202. FOLIC ACID [Concomitant]
     Active Substance: FOLIC ACID
     Route: 058
  203. FOLIC ACID [Concomitant]
     Active Substance: FOLIC ACID
  204. FOLIC ACID [Concomitant]
     Active Substance: FOLIC ACID
  205. FOLIC ACID [Concomitant]
     Active Substance: FOLIC ACID
  206. FOLIC ACID [Concomitant]
     Active Substance: FOLIC ACID
  207. FOLIC ACID [Concomitant]
     Active Substance: FOLIC ACID
  208. FOLIC ACID [Concomitant]
     Active Substance: FOLIC ACID
     Route: 048
  209. FOLIC ACID [Concomitant]
     Active Substance: FOLIC ACID
  210. FOLIC ACID [Concomitant]
     Active Substance: FOLIC ACID
  211. FOLIC ACID [Concomitant]
     Active Substance: FOLIC ACID
     Route: 058
  212. FOLIC ACID [Concomitant]
     Active Substance: FOLIC ACID
  213. FOLIC ACID [Concomitant]
     Active Substance: FOLIC ACID
  214. FOLIC ACID [Concomitant]
     Active Substance: FOLIC ACID
     Route: 048
  215. FOLIC ACID [Concomitant]
     Active Substance: FOLIC ACID
  216. FOLIC ACID [Concomitant]
     Active Substance: FOLIC ACID
  217. FOLIC ACID [Concomitant]
     Active Substance: FOLIC ACID
  218. FOLIC ACID [Concomitant]
     Active Substance: FOLIC ACID
  219. FOLIC ACID [Concomitant]
     Active Substance: FOLIC ACID
  220. FOLIC ACID [Concomitant]
     Active Substance: FOLIC ACID
     Route: 048
  221. FOLIC ACID [Concomitant]
     Active Substance: FOLIC ACID
     Route: 048
  222. FOLIC ACID [Concomitant]
     Active Substance: FOLIC ACID
     Route: 048
  223. FOLIC ACID [Concomitant]
     Active Substance: FOLIC ACID
     Route: 048
  224. FOLIC ACID [Concomitant]
     Active Substance: FOLIC ACID
  225. FOSAMAX [Concomitant]
     Active Substance: ALENDRONATE SODIUM
     Indication: Rheumatoid arthritis
     Route: 048
  226. FOSAMAX [Concomitant]
     Active Substance: ALENDRONATE SODIUM
     Route: 005
  227. FOSAMAX [Concomitant]
     Active Substance: ALENDRONATE SODIUM
  228. FOSAMAX [Concomitant]
     Active Substance: ALENDRONATE SODIUM
     Route: 058
  229. FOSAMAX [Concomitant]
     Active Substance: ALENDRONATE SODIUM
  230. GLUCOSAMINE [Concomitant]
     Active Substance: GLUCOSAMINE
     Indication: Product used for unknown indication
  231. HUMIRA [Concomitant]
     Active Substance: ADALIMUMAB
     Indication: Rheumatoid arthritis
     Route: 058
  232. HUMIRA [Concomitant]
     Active Substance: ADALIMUMAB
     Indication: Psoriatic arthropathy
     Route: 048
  233. HUMIRA [Concomitant]
     Active Substance: ADALIMUMAB
     Route: 058
  234. HUMIRA [Concomitant]
     Active Substance: ADALIMUMAB
     Route: 058
  235. HUMIRA [Concomitant]
     Active Substance: ADALIMUMAB
     Route: 058
  236. HUMIRA [Concomitant]
     Active Substance: ADALIMUMAB
  237. HUMIRA [Concomitant]
     Active Substance: ADALIMUMAB
     Route: 058
  238. HUMIRA [Concomitant]
     Active Substance: ADALIMUMAB
     Route: 058
  239. HUMIRA [Concomitant]
     Active Substance: ADALIMUMAB
     Route: 057
  240. HUMIRA [Concomitant]
     Active Substance: ADALIMUMAB
     Route: 058
  241. HUMIRA [Concomitant]
     Active Substance: ADALIMUMAB
     Route: 058
  242. HUMIRA [Concomitant]
     Active Substance: ADALIMUMAB
     Route: 058
  243. HUMIRA [Concomitant]
     Active Substance: ADALIMUMAB
     Route: 058
  244. HUMIRA [Concomitant]
     Active Substance: ADALIMUMAB
     Route: 058
  245. HUMIRA [Concomitant]
     Active Substance: ADALIMUMAB
     Route: 058
  246. HUMIRA [Concomitant]
     Active Substance: ADALIMUMAB
     Route: 058
  247. HUMIRA [Concomitant]
     Active Substance: ADALIMUMAB
  248. HUMIRA [Concomitant]
     Active Substance: ADALIMUMAB
     Route: 057
  249. HUMIRA [Concomitant]
     Active Substance: ADALIMUMAB
     Route: 042
  250. HUMIRA [Concomitant]
     Active Substance: ADALIMUMAB
     Route: 058
  251. IBUPROFEN [Concomitant]
     Active Substance: IBUPROFEN
     Indication: Product used for unknown indication
  252. INFLIXIMAB [Concomitant]
     Active Substance: INFLIXIMAB
     Indication: Rheumatoid arthritis
     Route: 042
  253. INFLIXIMAB [Concomitant]
     Active Substance: INFLIXIMAB
     Indication: Crohn^s disease
     Route: 042
  254. INFLIXIMAB [Concomitant]
     Active Substance: INFLIXIMAB
     Indication: Ankylosing spondylitis
  255. INFLIXIMAB [Concomitant]
     Active Substance: INFLIXIMAB
  256. INFLIXIMAB [Concomitant]
     Active Substance: INFLIXIMAB
  257. INFLIXIMAB [Concomitant]
     Active Substance: INFLIXIMAB
     Route: 042
  258. KEVZARA [Concomitant]
     Active Substance: SARILUMAB
     Indication: Rheumatoid arthritis
  259. KEVZARA [Concomitant]
     Active Substance: SARILUMAB
  260. LANSOPRAZOLE [Concomitant]
     Active Substance: LANSOPRAZOLE
     Indication: Product used for unknown indication
     Dosage: CAPSULE, DELAYED RELEASE
  261. LEVOTHYROXINE SODIUM [Concomitant]
     Active Substance: LEVOTHYROXINE SODIUM
     Indication: Product used for unknown indication
  262. LISINOPRIL [Concomitant]
     Active Substance: LISINOPRIL
     Indication: Product used for unknown indication
  263. LYRICA [Concomitant]
     Active Substance: PREGABALIN
     Indication: Fibromyalgia
  264. MAGNESIUM HYDROXIDE [Concomitant]
     Active Substance: MAGNESIUM HYDROXIDE
     Indication: Product used for unknown indication
  265. MELOXICAM [Concomitant]
     Active Substance: MELOXICAM
     Indication: Product used for unknown indication
  266. METHOTREXATE [Concomitant]
     Active Substance: METHOTREXATE
     Indication: Rheumatoid arthritis
  267. METHOTREXATE [Concomitant]
     Active Substance: METHOTREXATE
     Indication: Psoriatic arthropathy
     Route: 013
  268. METHOTREXATE [Concomitant]
     Active Substance: METHOTREXATE
     Route: 048
  269. METHOTREXATE [Concomitant]
     Active Substance: METHOTREXATE
     Route: 048
  270. METHOTREXATE [Concomitant]
     Active Substance: METHOTREXATE
  271. METHOTREXATE [Concomitant]
     Active Substance: METHOTREXATE
     Route: 013
  272. METHOTREXATE [Concomitant]
     Active Substance: METHOTREXATE
     Route: 013
  273. METHOTREXATE [Concomitant]
     Active Substance: METHOTREXATE
     Route: 048
  274. METHOTREXATE [Concomitant]
     Active Substance: METHOTREXATE
     Route: 048
  275. METHOTREXATE [Concomitant]
     Active Substance: METHOTREXATE
     Route: 048
  276. METHOTREXATE [Concomitant]
     Active Substance: METHOTREXATE
     Route: 048
  277. METHOTREXATE [Concomitant]
     Active Substance: METHOTREXATE
  278. METHOTREXATE [Concomitant]
     Active Substance: METHOTREXATE
     Route: 048
  279. METHOTREXATE [Concomitant]
     Active Substance: METHOTREXATE
  280. METHOTREXATE [Concomitant]
     Active Substance: METHOTREXATE
  281. METHOTREXATE [Concomitant]
     Active Substance: METHOTREXATE
  282. METHOTREXATE [Concomitant]
     Active Substance: METHOTREXATE
     Route: 048
  283. METHOTREXATE [Concomitant]
     Active Substance: METHOTREXATE
     Route: 048
  284. METHOTREXATE [Concomitant]
     Active Substance: METHOTREXATE
     Route: 048
  285. METHOTREXATE [Concomitant]
     Active Substance: METHOTREXATE
     Route: 048
  286. METHOTREXATE [Concomitant]
     Active Substance: METHOTREXATE
     Route: 058
  287. METHOTREXATE [Concomitant]
     Active Substance: METHOTREXATE
  288. METHOTREXATE [Concomitant]
     Active Substance: METHOTREXATE
     Route: 058
  289. MYCOPHENOLATE MOFETIL [Concomitant]
     Active Substance: MYCOPHENOLATE MOFETIL
     Indication: Product used for unknown indication
  290. NAPROXEN SODIUM [Concomitant]
     Active Substance: NAPROXEN SODIUM
     Indication: Rheumatoid arthritis
  291. NAPROXEN SODIUM [Concomitant]
     Active Substance: NAPROXEN SODIUM
  292. NAPROXEN SODIUM [Concomitant]
     Active Substance: NAPROXEN SODIUM
  293. NAPROXEN SODIUM [Concomitant]
     Active Substance: NAPROXEN SODIUM
  294. NEOMYCIN [Concomitant]
     Active Substance: NEOMYCIN
     Indication: Product used for unknown indication
  295. OTEZLA [Concomitant]
     Active Substance: APREMILAST
     Indication: Product used for unknown indication
     Route: 048
  296. OTEZLA [Concomitant]
     Active Substance: APREMILAST
  297. OXYCODONE [Concomitant]
     Active Substance: OXYCODONE
     Indication: Product used for unknown indication
  298. OXYCODONE [Concomitant]
     Active Substance: OXYCODONE
  299. PANTOPRAZOLE SODIUM [Concomitant]
     Active Substance: PANTOPRAZOLE SODIUM
     Indication: Product used for unknown indication
  300. PIROXICAM [Concomitant]
     Active Substance: PIROXICAM
     Indication: Product used for unknown indication
  301. HYDROXYCHLOROQUINE DIPHOSPHATE [Concomitant]
     Active Substance: HYDROXYCHLOROQUINE DIPHOSPHATE
     Indication: Rheumatoid arthritis
     Route: 048
  302. HYDROXYCHLOROQUINE DIPHOSPHATE [Concomitant]
     Active Substance: HYDROXYCHLOROQUINE DIPHOSPHATE
  303. HYDROXYCHLOROQUINE DIPHOSPHATE [Concomitant]
     Active Substance: HYDROXYCHLOROQUINE DIPHOSPHATE
     Route: 048
  304. HYDROXYCHLOROQUINE DIPHOSPHATE [Concomitant]
     Active Substance: HYDROXYCHLOROQUINE DIPHOSPHATE
  305. HYDROXYCHLOROQUINE DIPHOSPHATE [Concomitant]
     Active Substance: HYDROXYCHLOROQUINE DIPHOSPHATE
  306. HYDROXYCHLOROQUINE DIPHOSPHATE [Concomitant]
     Active Substance: HYDROXYCHLOROQUINE DIPHOSPHATE
  307. HYDROXYCHLOROQUINE DIPHOSPHATE [Concomitant]
     Active Substance: HYDROXYCHLOROQUINE DIPHOSPHATE
     Route: 048
  308. PREDNISOLONE [Concomitant]
     Active Substance: PREDNISOLONE
     Indication: Product used for unknown indication
  309. PREDNISONE [Concomitant]
     Active Substance: PREDNISONE
     Indication: Rheumatoid arthritis
     Route: 048
  310. PREDNISONE [Concomitant]
     Active Substance: PREDNISONE
     Indication: Psoriatic arthropathy
     Route: 042
  311. PREDNISONE [Concomitant]
     Active Substance: PREDNISONE
     Indication: Condition aggravated
     Route: 048
  312. PREDNISONE [Concomitant]
     Active Substance: PREDNISONE
     Route: 042
  313. PREDNISONE [Concomitant]
     Active Substance: PREDNISONE
     Route: 048
  314. PREDNISONE [Concomitant]
     Active Substance: PREDNISONE
  315. PREDNISONE [Concomitant]
     Active Substance: PREDNISONE
     Route: 048
  316. PREDNISONE [Concomitant]
     Active Substance: PREDNISONE
     Route: 048
  317. PREDNISONE [Concomitant]
     Active Substance: PREDNISONE
     Route: 048
  318. PREDNISONE [Concomitant]
     Active Substance: PREDNISONE
     Route: 048
  319. PREDNISONE [Concomitant]
     Active Substance: PREDNISONE
  320. PREDNISONE [Concomitant]
     Active Substance: PREDNISONE
  321. PSEUDOEPHEDRINE [Concomitant]
     Active Substance: PSEUDOEPHEDRINE
     Indication: Rheumatoid arthritis
  322. PSEUDOEPHEDRINE [Concomitant]
     Active Substance: PSEUDOEPHEDRINE
  323. PSEUDOEPHEDRINE [Concomitant]
     Active Substance: PSEUDOEPHEDRINE
  324. PSEUDOEPHEDRINE [Concomitant]
     Active Substance: PSEUDOEPHEDRINE
     Route: 048
  325. QUETIAPINE [Concomitant]
     Active Substance: QUETIAPINE
     Indication: Product used for unknown indication
  326. RAMIPRIL [Concomitant]
     Active Substance: RAMIPRIL
     Indication: Product used for unknown indication
  327. CETIRIZINE HYDROCHLORIDE [Concomitant]
     Active Substance: CETIRIZINE HYDROCHLORIDE
     Indication: Rheumatoid arthritis
  328. CETIRIZINE HYDROCHLORIDE\PSEUDOEPHEDRINE HYDROCHLORIDE [Concomitant]
     Active Substance: CETIRIZINE HYDROCHLORIDE\PSEUDOEPHEDRINE HYDROCHLORIDE
     Indication: Rheumatoid arthritis
     Route: 048
  329. CETIRIZINE HYDROCHLORIDE\PSEUDOEPHEDRINE HYDROCHLORIDE [Concomitant]
     Active Substance: CETIRIZINE HYDROCHLORIDE\PSEUDOEPHEDRINE HYDROCHLORIDE
  330. CETIRIZINE HYDROCHLORIDE\PSEUDOEPHEDRINE HYDROCHLORIDE [Concomitant]
     Active Substance: CETIRIZINE HYDROCHLORIDE\PSEUDOEPHEDRINE HYDROCHLORIDE
     Route: 042
  331. CETIRIZINE HYDROCHLORIDE\PSEUDOEPHEDRINE HYDROCHLORIDE [Concomitant]
     Active Substance: CETIRIZINE HYDROCHLORIDE\PSEUDOEPHEDRINE HYDROCHLORIDE
  332. CETIRIZINE HYDROCHLORIDE\PSEUDOEPHEDRINE HYDROCHLORIDE [Concomitant]
     Active Substance: CETIRIZINE HYDROCHLORIDE\PSEUDOEPHEDRINE HYDROCHLORIDE
  333. CETIRIZINE HYDROCHLORIDE\PSEUDOEPHEDRINE HYDROCHLORIDE [Concomitant]
     Active Substance: CETIRIZINE HYDROCHLORIDE\PSEUDOEPHEDRINE HYDROCHLORIDE
  334. CETIRIZINE HYDROCHLORIDE\PSEUDOEPHEDRINE HYDROCHLORIDE [Concomitant]
     Active Substance: CETIRIZINE HYDROCHLORIDE\PSEUDOEPHEDRINE HYDROCHLORIDE
  335. CETIRIZINE HYDROCHLORIDE\PSEUDOEPHEDRINE HYDROCHLORIDE [Concomitant]
     Active Substance: CETIRIZINE HYDROCHLORIDE\PSEUDOEPHEDRINE HYDROCHLORIDE
  336. CETIRIZINE HYDROCHLORIDE\PSEUDOEPHEDRINE HYDROCHLORIDE [Concomitant]
     Active Substance: CETIRIZINE HYDROCHLORIDE\PSEUDOEPHEDRINE HYDROCHLORIDE
  337. CETIRIZINE HYDROCHLORIDE\PSEUDOEPHEDRINE HYDROCHLORIDE [Concomitant]
     Active Substance: CETIRIZINE HYDROCHLORIDE\PSEUDOEPHEDRINE HYDROCHLORIDE
  338. RISEDRONATE SODIUM [Concomitant]
     Active Substance: RISEDRONATE SODIUM
     Indication: Product used for unknown indication
  339. RITUXIMAB [Concomitant]
     Active Substance: RITUXIMAB
     Indication: Rheumatoid arthritis
     Route: 041
  340. RITUXIMAB [Concomitant]
     Active Substance: RITUXIMAB
     Route: 058
  341. RITUXIMAB [Concomitant]
     Active Substance: RITUXIMAB
     Route: 042
  342. RITUXIMAB [Concomitant]
     Active Substance: RITUXIMAB
     Route: 042
  343. RITUXIMAB [Concomitant]
     Active Substance: RITUXIMAB
     Route: 042
  344. RITUXIMAB [Concomitant]
     Active Substance: RITUXIMAB
     Route: 042
  345. RITUXIMAB [Concomitant]
     Active Substance: RITUXIMAB
  346. RITUXIMAB [Concomitant]
     Active Substance: RITUXIMAB
     Route: 042
  347. RITUXIMAB [Concomitant]
     Active Substance: RITUXIMAB
     Route: 043
  348. RITUXIMAB [Concomitant]
     Active Substance: RITUXIMAB
  349. RITUXIMAB [Concomitant]
     Active Substance: RITUXIMAB
     Route: 042
  350. SULFASALAZINE [Concomitant]
     Active Substance: SULFASALAZINE
     Indication: Product used for unknown indication
  351. SULFASALAZINE [Concomitant]
     Active Substance: SULFASALAZINE
  352. SULFASALAZINE [Concomitant]
     Active Substance: SULFASALAZINE
  353. SIMPONI [Concomitant]
     Active Substance: GOLIMUMAB
     Indication: Rheumatoid arthritis
     Dosage: SOLUTION SUBCUTANEOUS
     Route: 058
  354. SIMPONI [Concomitant]
     Active Substance: GOLIMUMAB
     Indication: Psoriatic arthropathy
     Dosage: SOLUTION SUBCUTANEOUS
  355. SIMPONI [Concomitant]
     Active Substance: GOLIMUMAB
     Dosage: SOLUTION SUBCUTANEOUS
     Route: 042
  356. SIMPONI [Concomitant]
     Active Substance: GOLIMUMAB
  357. SIMPONI [Concomitant]
     Active Substance: GOLIMUMAB
     Route: 042
  358. SIMPONI [Concomitant]
     Active Substance: GOLIMUMAB
     Route: 058
  359. SIMPONI [Concomitant]
     Active Substance: GOLIMUMAB
     Route: 058
  360. STELARA [Concomitant]
     Active Substance: USTEKINUMAB
     Indication: Psoriatic arthropathy
     Dosage: SOLUTION SUBCUTANEOUS
     Route: 042
  361. STELARA [Concomitant]
     Active Substance: USTEKINUMAB
     Dosage: SOLUTION SUBCUTANEOUS
     Route: 058
  362. STELARA [Concomitant]
     Active Substance: USTEKINUMAB
  363. STELARA [Concomitant]
     Active Substance: USTEKINUMAB
     Route: 058
  364. STELARA [Concomitant]
     Active Substance: USTEKINUMAB
     Route: 042
  365. STELARA [Concomitant]
     Active Substance: USTEKINUMAB
     Route: 058
  366. STELARA [Concomitant]
     Active Substance: USTEKINUMAB
  367. SULFAMETHOXAZOLE [Concomitant]
     Active Substance: SULFAMETHOXAZOLE
     Indication: Product used for unknown indication
  368. SULFAMETHOXAZOLE [Concomitant]
     Active Substance: SULFAMETHOXAZOLE
     Route: 067
  369. SULFAMETHOXAZOLE AND TRIMETHOPRIM [Concomitant]
     Active Substance: SULFAMETHOXAZOLE\TRIMETHOPRIM
     Indication: Product used for unknown indication
  370. SULFASALAZINE [Concomitant]
     Active Substance: SULFASALAZINE
     Indication: Rheumatoid arthritis
     Route: 048
  371. SULFASALAZINE [Concomitant]
     Active Substance: SULFASALAZINE
  372. SULFASALAZINE [Concomitant]
     Active Substance: SULFASALAZINE
     Route: 048
  373. SULFASALAZINE [Concomitant]
     Active Substance: SULFASALAZINE
  374. SULFASALAZINE [Concomitant]
     Active Substance: SULFASALAZINE
  375. SULFASALAZINE [Concomitant]
     Active Substance: SULFASALAZINE
     Route: 048
  376. SULFASALAZINE [Concomitant]
     Active Substance: SULFASALAZINE
     Route: 048
  377. SULFASALAZINE [Concomitant]
     Active Substance: SULFASALAZINE
     Route: 048
  378. SULFASALAZINE [Concomitant]
     Active Substance: SULFASALAZINE
     Dosage: 0 IN 1 DAY
     Route: 048
  379. SULFASALAZINE [Concomitant]
     Active Substance: SULFASALAZINE
     Route: 048
  380. SULFASALAZINE [Concomitant]
     Active Substance: SULFASALAZINE
     Route: 048
  381. SULFASALAZINE [Concomitant]
     Active Substance: SULFASALAZINE
     Route: 048
  382. SULFASALAZINE [Concomitant]
     Active Substance: SULFASALAZINE
  383. SULFASALAZINE [Concomitant]
     Active Substance: SULFASALAZINE
     Route: 058
  384. SULFASALAZINE [Concomitant]
     Active Substance: SULFASALAZINE
     Route: 048
  385. SULFASALAZINE [Concomitant]
     Active Substance: SULFASALAZINE
     Route: 048
  386. SULFASALAZINE [Concomitant]
     Active Substance: SULFASALAZINE
  387. SULFASALAZINE [Concomitant]
     Active Substance: SULFASALAZINE
     Route: 048
  388. SULFASALAZINE [Concomitant]
     Active Substance: SULFASALAZINE
     Route: 048
  389. SULFASALAZINE [Concomitant]
     Active Substance: SULFASALAZINE
     Route: 048
  390. SULFASALAZINE [Concomitant]
     Active Substance: SULFASALAZINE
     Route: 048
  391. SULFASALAZINE [Concomitant]
     Active Substance: SULFASALAZINE
     Route: 048
  392. SULFASALAZINE [Concomitant]
     Active Substance: SULFASALAZINE
  393. SULFASALAZINE [Concomitant]
     Active Substance: SULFASALAZINE
  394. SULFASALAZINE [Concomitant]
     Active Substance: SULFASALAZINE
     Route: 048
  395. SULFASALAZINE [Concomitant]
     Active Substance: SULFASALAZINE
     Route: 058
  396. SULFASALAZINE [Concomitant]
     Active Substance: SULFASALAZINE
     Route: 048
  397. SULFASALAZINE [Concomitant]
     Active Substance: SULFASALAZINE
  398. SULFASALAZINE [Concomitant]
     Active Substance: SULFASALAZINE
  399. SULFASALAZINE [Concomitant]
     Active Substance: SULFASALAZINE
     Route: 048
  400. SULFASALAZINE [Concomitant]
     Active Substance: SULFASALAZINE
     Route: 048
  401. SULFASALAZINE [Concomitant]
     Active Substance: SULFASALAZINE
     Route: 048
  402. SULFASALAZINE [Concomitant]
     Active Substance: SULFASALAZINE
  403. SULFASALAZINE [Concomitant]
     Active Substance: SULFASALAZINE
     Route: 058
  404. SULFASALAZINE [Concomitant]
     Active Substance: SULFASALAZINE
     Route: 048
  405. SULFASALAZINE [Concomitant]
     Active Substance: SULFASALAZINE
     Route: 048
  406. SULFASALAZINE [Concomitant]
     Active Substance: SULFASALAZINE
     Route: 058
  407. SULFASALAZINE [Concomitant]
     Active Substance: SULFASALAZINE
     Route: 058
  408. SULFASALAZINE [Concomitant]
     Active Substance: SULFASALAZINE
     Route: 048
  409. SULFASALAZINE [Concomitant]
     Active Substance: SULFASALAZINE
     Route: 048
  410. SULFASALAZINE [Concomitant]
     Active Substance: SULFASALAZINE
     Route: 058
  411. SULFASALAZINE [Concomitant]
     Active Substance: SULFASALAZINE
     Route: 048
  412. SULFASALAZINE [Concomitant]
     Active Substance: SULFASALAZINE
     Route: 048
  413. SULFASALAZINE [Concomitant]
     Active Substance: SULFASALAZINE
     Route: 048
  414. SULFASALAZINE [Concomitant]
     Active Substance: SULFASALAZINE
     Route: 048
  415. SULFASALAZINE [Concomitant]
     Active Substance: SULFASALAZINE
  416. SULFASALAZINE [Concomitant]
     Active Substance: SULFASALAZINE
     Route: 048
  417. SULFASALAZINE [Concomitant]
     Active Substance: SULFASALAZINE
     Route: 058
  418. SULFASALAZINE [Concomitant]
     Active Substance: SULFASALAZINE
     Route: 048
  419. SULFASALAZINE [Concomitant]
     Active Substance: SULFASALAZINE
     Route: 058
  420. SULFASALAZINE [Concomitant]
     Active Substance: SULFASALAZINE
     Route: 048
  421. SULFASALAZINE [Concomitant]
     Active Substance: SULFASALAZINE
     Route: 058
  422. SULFASALAZINE [Concomitant]
     Active Substance: SULFASALAZINE
     Route: 048
  423. SULFASALAZINE [Concomitant]
     Active Substance: SULFASALAZINE
  424. SULFASALAZINE [Concomitant]
     Active Substance: SULFASALAZINE
  425. SULFASALAZINE [Concomitant]
     Active Substance: SULFASALAZINE
  426. SULFASALAZINE [Concomitant]
     Active Substance: SULFASALAZINE
     Route: 048
  427. SULFASALAZINE [Concomitant]
     Active Substance: SULFASALAZINE
     Route: 050
  428. TRAMADOL HYDROCHLORIDE [Concomitant]
     Active Substance: TRAMADOL HYDROCHLORIDE
     Indication: Product used for unknown indication
  429. TYLENOL WITH CODEINE [Concomitant]
     Active Substance: ACETAMINOPHEN\CODEINE PHOSPHATE
     Indication: Product used for unknown indication
  430. XELJANZ [Concomitant]
     Active Substance: TOFACITINIB CITRATE
     Indication: Rheumatoid arthritis
     Route: 048
  431. XELJANZ [Concomitant]
     Active Substance: TOFACITINIB CITRATE
  432. XELJANZ [Concomitant]
     Active Substance: TOFACITINIB CITRATE
     Route: 048
  433. XELJANZ [Concomitant]
     Active Substance: TOFACITINIB CITRATE
  434. XELJANZ [Concomitant]
     Active Substance: TOFACITINIB CITRATE
     Route: 048
  435. XELJANZ [Concomitant]
     Active Substance: TOFACITINIB CITRATE
  436. XELJANZ [Concomitant]
     Active Substance: TOFACITINIB CITRATE
  437. XELJANZ [Concomitant]
     Active Substance: TOFACITINIB CITRATE
  438. XELJANZ [Concomitant]
     Active Substance: TOFACITINIB CITRATE
     Route: 048
  439. XELJANZ [Concomitant]
     Active Substance: TOFACITINIB CITRATE
  440. CAFFEINE;DIHYDROCODEINE;PARACETAMOL [Concomitant]
     Indication: Product used for unknown indication
  441. FLUMETHASONE PIVALATE [Concomitant]
     Active Substance: FLUMETHASONE PIVALATE
     Indication: Rheumatoid arthritis
     Route: 058
  442. FLUMETHASONE PIVALATE [Concomitant]
     Active Substance: FLUMETHASONE PIVALATE
  443. FLUMETHASONE PIVALATE [Concomitant]
     Active Substance: FLUMETHASONE PIVALATE
  444. HYDROCORTISONE PROBUTATE [Concomitant]
     Active Substance: HYDROCORTISONE PROBUTATE
     Indication: Rheumatoid arthritis
  445. HYDROCORTISONE PROBUTATE [Concomitant]
     Active Substance: HYDROCORTISONE PROBUTATE
  446. HYDROCORTISONE PROBUTATE [Concomitant]
     Active Substance: HYDROCORTISONE PROBUTATE
     Route: 003
  447. HYDROCORTISONE PROBUTATE [Concomitant]
     Active Substance: HYDROCORTISONE PROBUTATE
     Route: 048
  448. HYDROCORTISONE PROBUTATE [Concomitant]
     Active Substance: HYDROCORTISONE PROBUTATE
     Route: 061
  449. HYDROCORTISONE PROBUTATE [Concomitant]
     Active Substance: HYDROCORTISONE PROBUTATE
     Route: 061
  450. PHTHALYLSULFATHIAZOLE [Concomitant]
     Active Substance: PHTHALYLSULFATHIAZOLE
     Indication: Rheumatoid arthritis
  451. PHTHALYLSULFATHIAZOLE [Concomitant]
     Active Substance: PHTHALYLSULFATHIAZOLE
     Route: 016
  452. PHTHALYLSULFATHIAZOLE [Concomitant]
     Active Substance: PHTHALYLSULFATHIAZOLE
     Route: 048
  453. PHTHALYLSULFATHIAZOLE [Concomitant]
     Active Substance: PHTHALYLSULFATHIAZOLE
     Route: 042
  454. PHTHALYLSULFATHIAZOLE [Concomitant]
     Active Substance: PHTHALYLSULFATHIAZOLE
  455. PHTHALYLSULFATHIAZOLE [Concomitant]
     Active Substance: PHTHALYLSULFATHIAZOLE
     Route: 042
  456. PHTHALYLSULFATHIAZOLE [Concomitant]
     Active Substance: PHTHALYLSULFATHIAZOLE
  457. PHTHALYLSULFATHIAZOLE [Concomitant]
     Active Substance: PHTHALYLSULFATHIAZOLE
  458. PHTHALYLSULFATHIAZOLE [Concomitant]
     Active Substance: PHTHALYLSULFATHIAZOLE
     Route: 058
  459. PHTHALYLSULFATHIAZOLE [Concomitant]
     Active Substance: PHTHALYLSULFATHIAZOLE
     Route: 048
  460. PHTHALYLSULFATHIAZOLE [Concomitant]
     Active Substance: PHTHALYLSULFATHIAZOLE
     Route: 048
  461. PHTHALYLSULFATHIAZOLE [Concomitant]
     Active Substance: PHTHALYLSULFATHIAZOLE
  462. PHTHALYLSULFATHIAZOLE [Concomitant]
     Active Substance: PHTHALYLSULFATHIAZOLE
     Route: 058
  463. PHTHALYLSULFATHIAZOLE [Concomitant]
     Active Substance: PHTHALYLSULFATHIAZOLE
     Route: 042
  464. PHTHALYLSULFATHIAZOLE [Concomitant]
     Active Substance: PHTHALYLSULFATHIAZOLE
  465. PHTHALYLSULFATHIAZOLE [Concomitant]
     Active Substance: PHTHALYLSULFATHIAZOLE
     Route: 048
  466. PHTHALYLSULFATHIAZOLE [Concomitant]
     Active Substance: PHTHALYLSULFATHIAZOLE
     Route: 058
  467. PHTHALYLSULFATHIAZOLE [Concomitant]
     Active Substance: PHTHALYLSULFATHIAZOLE
     Route: 048
  468. PHTHALYLSULFATHIAZOLE [Concomitant]
     Active Substance: PHTHALYLSULFATHIAZOLE
     Route: 016
  469. PHTHALYLSULFATHIAZOLE [Concomitant]
     Active Substance: PHTHALYLSULFATHIAZOLE
     Route: 005
  470. PHTHALYLSULFATHIAZOLE [Concomitant]
     Active Substance: PHTHALYLSULFATHIAZOLE
     Route: 048
  471. PHTHALYLSULFATHIAZOLE [Concomitant]
     Active Substance: PHTHALYLSULFATHIAZOLE
  472. HYDROXYCHLOROQUINE [Concomitant]
     Active Substance: HYDROXYCHLOROQUINE
     Indication: Rheumatoid arthritis
  473. HYDROXYCHLOROQUINE [Concomitant]
     Active Substance: HYDROXYCHLOROQUINE
     Route: 066
  474. HYDROXYCHLOROQUINE [Concomitant]
     Active Substance: HYDROXYCHLOROQUINE
     Route: 048
  475. HYDROXYCHLOROQUINE [Concomitant]
     Active Substance: HYDROXYCHLOROQUINE
  476. OXYCODONE TEREPHTHALATE [Concomitant]
     Active Substance: OXYCODONE TEREPHTHALATE
     Indication: Product used for unknown indication
  477. METHOTREXATE SODIUM [Concomitant]
     Active Substance: METHOTREXATE SODIUM
     Indication: Rheumatoid arthritis
     Route: 048
  478. METHOTREXATE SODIUM [Concomitant]
     Active Substance: METHOTREXATE SODIUM
     Route: 048
  479. METHOTREXATE SODIUM [Concomitant]
     Active Substance: METHOTREXATE SODIUM
     Route: 013
  480. METHOTREXATE SODIUM [Concomitant]
     Active Substance: METHOTREXATE SODIUM
  481. METHOTREXATE SODIUM [Concomitant]
     Active Substance: METHOTREXATE SODIUM
     Route: 048
  482. METHOTREXATE SODIUM [Concomitant]
     Active Substance: METHOTREXATE SODIUM
     Route: 058
  483. METHOTREXATE SODIUM [Concomitant]
     Active Substance: METHOTREXATE SODIUM
  484. METHOTREXATE SODIUM [Concomitant]
     Active Substance: METHOTREXATE SODIUM
     Route: 048
  485. METHOTREXATE SODIUM [Concomitant]
     Active Substance: METHOTREXATE SODIUM
  486. METHOTREXATE SODIUM [Concomitant]
     Active Substance: METHOTREXATE SODIUM
     Route: 013
  487. METHOTREXATE SODIUM [Concomitant]
     Active Substance: METHOTREXATE SODIUM
     Route: 048
  488. METHOTREXATE SODIUM [Concomitant]
     Active Substance: METHOTREXATE SODIUM
     Route: 058
  489. METHOTREXATE SODIUM [Concomitant]
     Active Substance: METHOTREXATE SODIUM
     Route: 048
  490. METHOTREXATE SODIUM [Concomitant]
     Active Substance: METHOTREXATE SODIUM
     Route: 048
  491. METHOTREXATE SODIUM [Concomitant]
     Active Substance: METHOTREXATE SODIUM
     Route: 048
  492. METHOTREXATE SODIUM [Concomitant]
     Active Substance: METHOTREXATE SODIUM
     Route: 048
  493. METHOTREXATE SODIUM [Concomitant]
     Active Substance: METHOTREXATE SODIUM
  494. METHOTREXATE SODIUM [Concomitant]
     Active Substance: METHOTREXATE SODIUM
     Route: 048
  495. METHOTREXATE SODIUM [Concomitant]
     Active Substance: METHOTREXATE SODIUM
     Route: 048
  496. METHOTREXATE SODIUM [Concomitant]
     Active Substance: METHOTREXATE SODIUM
     Route: 013
  497. METHOTREXATE SODIUM [Concomitant]
     Active Substance: METHOTREXATE SODIUM
     Route: 058
  498. METHOTREXATE SODIUM [Concomitant]
     Active Substance: METHOTREXATE SODIUM
     Route: 048
  499. METHOTREXATE SODIUM [Concomitant]
     Active Substance: METHOTREXATE SODIUM
  500. METHOTREXATE SODIUM [Concomitant]
     Active Substance: METHOTREXATE SODIUM
     Route: 048
  501. METHOTREXATE SODIUM [Concomitant]
     Active Substance: METHOTREXATE SODIUM
     Route: 013
  502. METHOTREXATE SODIUM [Concomitant]
     Active Substance: METHOTREXATE SODIUM
     Route: 048
  503. METHOTREXATE SODIUM [Concomitant]
     Active Substance: METHOTREXATE SODIUM
     Route: 048
  504. METHOTREXATE SODIUM [Concomitant]
     Active Substance: METHOTREXATE SODIUM
  505. DICLOFENAC SODIUM [Concomitant]
     Active Substance: DICLOFENAC SODIUM
     Indication: Product used for unknown indication
     Route: 047
  506. DICLOFENAC SODIUM [Concomitant]
     Active Substance: DICLOFENAC SODIUM
  507. DICLOFENAC SODIUM [Concomitant]
     Active Substance: DICLOFENAC SODIUM
  508. DICLOFENAC SODIUM [Concomitant]
     Active Substance: DICLOFENAC SODIUM
  509. DICLOFENAC SODIUM [Concomitant]
     Active Substance: DICLOFENAC SODIUM
  510. DICLOFENAC SODIUM [Concomitant]
     Active Substance: DICLOFENAC SODIUM
  511. DICLOFENAC SODIUM [Concomitant]
     Active Substance: DICLOFENAC SODIUM
  512. DICLOFENAC SODIUM [Concomitant]
     Active Substance: DICLOFENAC SODIUM
  513. DICLOFENAC POTASSIUM [Concomitant]
     Active Substance: DICLOFENAC POTASSIUM
     Indication: Product used for unknown indication
  514. DICLOFENAC POTASSIUM [Concomitant]
     Active Substance: DICLOFENAC POTASSIUM
     Route: 048
  515. DICLOFENAC POTASSIUM [Concomitant]
     Active Substance: DICLOFENAC POTASSIUM
     Route: 047
  516. DICLOFENAC POTASSIUM [Concomitant]
     Active Substance: DICLOFENAC POTASSIUM
  517. DICLOFENAC POTASSIUM [Concomitant]
     Active Substance: DICLOFENAC POTASSIUM
  518. CORTISONE ACETATE [Concomitant]
     Active Substance: CORTISONE ACETATE
     Indication: Rheumatoid arthritis
     Route: 061
  519. CORTISONE ACETATE [Concomitant]
     Active Substance: CORTISONE ACETATE
  520. CORTISONE ACETATE [Concomitant]
     Active Substance: CORTISONE ACETATE
  521. CORTISONE ACETATE [Concomitant]
     Active Substance: CORTISONE ACETATE
     Route: 061
  522. CORTISONE ACETATE [Concomitant]
     Active Substance: CORTISONE ACETATE
     Route: 061
  523. CORTISONE ACETATE [Concomitant]
     Active Substance: CORTISONE ACETATE
  524. CORTISONE ACETATE [Concomitant]
     Active Substance: CORTISONE ACETATE
     Route: 061
  525. CORTISONE ACETATE [Concomitant]
     Active Substance: CORTISONE ACETATE
     Route: 061
  526. CORTISONE ACETATE [Concomitant]
     Active Substance: CORTISONE ACETATE
     Route: 048
  527. CORTISONE ACETATE [Concomitant]
     Active Substance: CORTISONE ACETATE
     Route: 061
  528. CORTISONE ACETATE [Concomitant]
     Active Substance: CORTISONE ACETATE
  529. CORTISONE ACETATE [Concomitant]
     Active Substance: CORTISONE ACETATE
  530. CORTISONE ACETATE [Concomitant]
     Active Substance: CORTISONE ACETATE
     Route: 003
  531. CORTISONE ACETATE [Concomitant]
     Active Substance: CORTISONE ACETATE
     Route: 061
  532. CORTISONE ACETATE [Concomitant]
     Active Substance: CORTISONE ACETATE
     Route: 048
  533. CORTISONE ACETATE [Concomitant]
     Active Substance: CORTISONE ACETATE
     Route: 061
  534. CORTISONE ACETATE [Concomitant]
     Active Substance: CORTISONE ACETATE
     Route: 058
  535. CORTISONE ACETATE [Concomitant]
     Active Substance: CORTISONE ACETATE
     Route: 061
  536. CORTISONE ACETATE [Concomitant]
     Active Substance: CORTISONE ACETATE
  537. CORTISONE ACETATE [Concomitant]
     Active Substance: CORTISONE ACETATE
     Route: 061
  538. CORTISONE ACETATE [Concomitant]
     Active Substance: CORTISONE ACETATE
     Route: 061
  539. CORTISONE ACETATE [Concomitant]
     Active Substance: CORTISONE ACETATE
     Route: 048
  540. CORTISONE ACETATE [Concomitant]
     Active Substance: CORTISONE ACETATE
  541. CORTISONE ACETATE [Concomitant]
     Active Substance: CORTISONE ACETATE
     Route: 058
  542. CORTISONE ACETATE [Concomitant]
     Active Substance: CORTISONE ACETATE
     Route: 061
  543. CORTISONE ACETATE [Concomitant]
     Active Substance: CORTISONE ACETATE
  544. CORTISONE ACETATE [Concomitant]
     Active Substance: CORTISONE ACETATE
  545. CORTISONE ACETATE [Concomitant]
     Active Substance: CORTISONE ACETATE
     Route: 061
  546. CORTISONE ACETATE [Concomitant]
     Active Substance: CORTISONE ACETATE
  547. CORTISONE ACETATE [Concomitant]
     Active Substance: CORTISONE ACETATE
  548. CORTISONE ACETATE [Concomitant]
     Active Substance: CORTISONE ACETATE
     Route: 048
  549. CORTISONE ACETATE [Concomitant]
     Active Substance: CORTISONE ACETATE
     Route: 061
  550. CORTISONE ACETATE [Concomitant]
     Active Substance: CORTISONE ACETATE
     Route: 061
  551. CORTISONE ACETATE [Concomitant]
     Active Substance: CORTISONE ACETATE
     Route: 058
  552. ACETAMINOPHEN AND CODEINE [Concomitant]
     Active Substance: ACETAMINOPHEN\CODEINE PHOSPHATE
     Indication: Product used for unknown indication
  553. ACETAMINOPHEN AND CODEINE [Concomitant]
     Active Substance: ACETAMINOPHEN\CODEINE PHOSPHATE
  554. ALLERCET-DC [CETIRIZINE HYDROCHLORIDE;PHENYLEPHRINE HYDROCHLORIDE] [Concomitant]
     Indication: Product used for unknown indication
  555. LEFLUNOMIDE [Concomitant]
     Active Substance: LEFLUNOMIDE
     Indication: Rheumatoid arthritis
     Route: 048
  556. LEFLUNOMIDE [Concomitant]
     Active Substance: LEFLUNOMIDE
  557. LEFLUNOMIDE [Concomitant]
     Active Substance: LEFLUNOMIDE
     Route: 048
  558. LEFLUNOMIDE [Concomitant]
     Active Substance: LEFLUNOMIDE
  559. LEFLUNOMIDE [Concomitant]
     Active Substance: LEFLUNOMIDE
  560. LEFLUNOMIDE [Concomitant]
     Active Substance: LEFLUNOMIDE
  561. LEFLUNOMIDE [Concomitant]
     Active Substance: LEFLUNOMIDE
  562. LEFLUNOMIDE [Concomitant]
     Active Substance: LEFLUNOMIDE
  563. CALCIUM GLUBIONATE [Concomitant]
     Active Substance: CALCIUM GLUBIONATE
     Indication: Product used for unknown indication
     Route: 048
  564. CETRIMIDE [Concomitant]
     Active Substance: CETRIMIDE
     Indication: Product used for unknown indication
  565. CHLORHEXIDINE [Concomitant]
     Active Substance: CHLORHEXIDINE
     Indication: Product used for unknown indication
  566. CHLORHEXIDINE [Concomitant]
     Active Substance: CHLORHEXIDINE
     Route: 061
  567. CHLORHEXIDINE [Concomitant]
     Active Substance: CHLORHEXIDINE
     Route: 048
  568. ACETAMINOPHEN\PROPOXYPHENE [Concomitant]
     Active Substance: ACETAMINOPHEN\PROPOXYPHENE
     Indication: Product used for unknown indication
  569. EMEND (FOSAPREPITANT DIMEGLUMINE) [Concomitant]
     Active Substance: FOSAPREPITANT DIMEGLUMINE
     Indication: Product used for unknown indication
     Dosage: POWDER FOR?SOLUTION?INTRAVENOUS
  570. ERELZI [Concomitant]
     Active Substance: ETANERCEPT-SZZS
     Indication: Rheumatoid arthritis
  571. ERELZI [Concomitant]
     Active Substance: ETANERCEPT-SZZS
     Route: 058
  572. ERELZI [Concomitant]
     Active Substance: ETANERCEPT-SZZS
     Route: 058
  573. ERELZI [Concomitant]
     Active Substance: ETANERCEPT-SZZS
     Route: 048
  574. FOSAVANCE [Concomitant]
     Active Substance: ALENDRONATE SODIUM\CHOLECALCIFEROL
     Indication: Product used for unknown indication
  575. FOSAVANCE [Concomitant]
     Active Substance: ALENDRONATE SODIUM\CHOLECALCIFEROL
     Route: 048
  576. HYDROCORTISONE ACETATE [Concomitant]
     Active Substance: HYDROCORTISONE ACETATE
     Indication: Rheumatoid arthritis
     Route: 058
  577. HYDROCORTISONE ACETATE [Concomitant]
     Active Substance: HYDROCORTISONE ACETATE
     Route: 048
  578. HYDROCORTISONE ACETATE [Concomitant]
     Active Substance: HYDROCORTISONE ACETATE
     Route: 003
  579. HYDROXYCHLOROQUINE SULFATE [Concomitant]
     Active Substance: HYDROXYCHLOROQUINE SULFATE
     Indication: Systemic lupus erythematosus
     Route: 048
  580. HYDROXYCHLOROQUINE SULFATE [Concomitant]
     Active Substance: HYDROXYCHLOROQUINE SULFATE
     Indication: Rheumatoid arthritis
  581. HYDROXYCHLOROQUINE SULFATE [Concomitant]
     Active Substance: HYDROXYCHLOROQUINE SULFATE
  582. HYDROXYCHLOROQUINE SULFATE [Concomitant]
     Active Substance: HYDROXYCHLOROQUINE SULFATE
     Route: 048
  583. HYDROXYCHLOROQUINE SULFATE [Concomitant]
     Active Substance: HYDROXYCHLOROQUINE SULFATE
     Route: 048
  584. HYDROXYCHLOROQUINE SULFATE [Concomitant]
     Active Substance: HYDROXYCHLOROQUINE SULFATE
     Route: 048
  585. HYDROXYCHLOROQUINE SULFATE [Concomitant]
     Active Substance: HYDROXYCHLOROQUINE SULFATE
     Route: 048
  586. HYDROXYCHLOROQUINE SULFATE [Concomitant]
     Active Substance: HYDROXYCHLOROQUINE SULFATE
  587. HYDROXYCHLOROQUINE SULFATE [Concomitant]
     Active Substance: HYDROXYCHLOROQUINE SULFATE
     Route: 048
  588. HYDROXYCHLOROQUINE SULFATE [Concomitant]
     Active Substance: HYDROXYCHLOROQUINE SULFATE
     Route: 058
  589. HYDROXYCHLOROQUINE SULFATE [Concomitant]
     Active Substance: HYDROXYCHLOROQUINE SULFATE
  590. HYDROXYCHLOROQUINE SULFATE [Concomitant]
     Active Substance: HYDROXYCHLOROQUINE SULFATE
  591. HYDROXYCHLOROQUINE SULFATE [Concomitant]
     Active Substance: HYDROXYCHLOROQUINE SULFATE
  592. HYDROXYCHLOROQUINE SULFATE [Concomitant]
     Active Substance: HYDROXYCHLOROQUINE SULFATE
     Route: 066
  593. HYDROXYCHLOROQUINE SULFATE [Concomitant]
     Active Substance: HYDROXYCHLOROQUINE SULFATE
  594. HYDROXYCHLOROQUINE SULFATE [Concomitant]
     Active Substance: HYDROXYCHLOROQUINE SULFATE
     Route: 066
  595. HYDROXYCHLOROQUINE SULFATE [Concomitant]
     Active Substance: HYDROXYCHLOROQUINE SULFATE
  596. HYDROXYCHLOROQUINE SULFATE [Concomitant]
     Active Substance: HYDROXYCHLOROQUINE SULFATE
  597. HYDROXYCHLOROQUINE SULFATE [Concomitant]
     Active Substance: HYDROXYCHLOROQUINE SULFATE
  598. HYDROXYCHLOROQUINE SULFATE [Concomitant]
     Active Substance: HYDROXYCHLOROQUINE SULFATE
     Route: 066
  599. HYDROXYCHLOROQUINE SULFATE [Concomitant]
     Active Substance: HYDROXYCHLOROQUINE SULFATE
     Route: 048
  600. HYDROXYCHLOROQUINE SULFATE [Concomitant]
     Active Substance: HYDROXYCHLOROQUINE SULFATE
  601. HYDROXYCHLOROQUINE SULFATE [Concomitant]
     Active Substance: HYDROXYCHLOROQUINE SULFATE
     Route: 005
  602. LEFLUNOMIDE [Concomitant]
     Active Substance: LEFLUNOMIDE
     Indication: Rheumatoid arthritis
     Route: 048
  603. LEFLUNOMIDE [Concomitant]
     Active Substance: LEFLUNOMIDE
  604. LEFLUNOMIDE [Concomitant]
     Active Substance: LEFLUNOMIDE
     Route: 048
  605. LEFLUNOMIDE [Concomitant]
     Active Substance: LEFLUNOMIDE
  606. LEFLUNOMIDE [Concomitant]
     Active Substance: LEFLUNOMIDE
     Route: 048
  607. LEFLUNOMIDE [Concomitant]
     Active Substance: LEFLUNOMIDE
  608. LEFLUNOMIDE [Concomitant]
     Active Substance: LEFLUNOMIDE
  609. LEFLUNOMIDE [Concomitant]
     Active Substance: LEFLUNOMIDE
     Route: 048
  610. LEFLUNOMIDE [Concomitant]
     Active Substance: LEFLUNOMIDE
     Route: 048
  611. FLUMETHASONE PIVALATE [Concomitant]
     Active Substance: FLUMETHASONE PIVALATE
     Indication: Rheumatoid arthritis
     Route: 058
  612. FLUMETHASONE PIVALATE [Concomitant]
     Active Substance: FLUMETHASONE PIVALATE
  613. FLUMETHASONE PIVALATE [Concomitant]
     Active Substance: FLUMETHASONE PIVALATE
     Route: 003
  614. FLUMETHASONE PIVALATE [Concomitant]
     Active Substance: FLUMETHASONE PIVALATE
     Route: 058
  615. FLUMETHASONE PIVALATE [Concomitant]
     Active Substance: FLUMETHASONE PIVALATE
  616. METHYLPREDNISOLONE SODIUM SUCCINATE [Concomitant]
     Active Substance: METHYLPREDNISOLONE SODIUM SUCCINATE
     Indication: Product used for unknown indication
  617. PERIOGARD [Concomitant]
     Active Substance: CHLORHEXIDINE GLUCONATE
     Indication: Rheumatoid arthritis
     Route: 002
  618. PERIOGARD [Concomitant]
     Active Substance: CHLORHEXIDINE GLUCONATE
  619. OXYCODONE AND ACETAMINOPHEN [Concomitant]
     Active Substance: ACETAMINOPHEN\OXYCODONE HYDROCHLORIDE
     Indication: Product used for unknown indication
  620. REMICADE [Concomitant]
     Active Substance: INFLIXIMAB
     Indication: Rheumatoid arthritis
     Dosage: POWDER FOR?SOLUTION?INTRAVENOUS
  621. REMICADE [Concomitant]
     Active Substance: INFLIXIMAB
     Indication: Psoriatic arthropathy
     Dosage: POWDER FOR?SOLUTION?INTRAVENOUS
  622. REMICADE [Concomitant]
     Active Substance: INFLIXIMAB
     Indication: Psoriasis
     Dosage: POWDER FOR?SOLUTION?INTRAVENOUS
  623. REMICADE [Concomitant]
     Active Substance: INFLIXIMAB
     Indication: Crohn^s disease
     Route: 042
  624. REMICADE [Concomitant]
     Active Substance: INFLIXIMAB
     Indication: Ankylosing spondylitis
     Dosage: POWDER FOR?SOLUTION?INTRAVENOUS
     Route: 058
  625. REMICADE [Concomitant]
     Active Substance: INFLIXIMAB
     Dosage: POWDER FOR?SOLUTION?INTRAVENOUS
  626. REMICADE [Concomitant]
     Active Substance: INFLIXIMAB
     Dosage: POWDER FOR?SOLUTION?INTRAVENOUS
  627. REMICADE [Concomitant]
     Active Substance: INFLIXIMAB
     Dosage: POWDER FOR?SOLUTION?INTRAVENOUS
  628. REMICADE [Concomitant]
     Active Substance: INFLIXIMAB
     Dosage: POWDER FOR?SOLUTION?INTRAVENOUS
     Route: 042
  629. REMICADE [Concomitant]
     Active Substance: INFLIXIMAB
     Dosage: POWDER FOR?SOLUTION?INTRAVENOUS
  630. REMICADE [Concomitant]
     Active Substance: INFLIXIMAB
     Route: 042
  631. REMICADE [Concomitant]
     Active Substance: INFLIXIMAB
     Route: 042
  632. REMICADE [Concomitant]
     Active Substance: INFLIXIMAB
     Route: 048
  633. REMICADE [Concomitant]
     Active Substance: INFLIXIMAB
  634. TOPICORT [Concomitant]
     Active Substance: DESOXIMETASONE
     Indication: Rheumatoid arthritis
     Route: 058
  635. TOPICORT [Concomitant]
     Active Substance: DESOXIMETASONE
     Route: 003
  636. TOPICORT [Concomitant]
     Active Substance: DESOXIMETASONE
     Route: 048
  637. TOPICORT [Concomitant]
     Active Substance: DESOXIMETASONE
  638. VITAMIN C [Concomitant]
     Active Substance: ASCORBIC ACID
     Indication: Product used for unknown indication
  639. PREDNISONE [Concomitant]
     Active Substance: PREDNISONE
     Indication: Rheumatoid arthritis
  640. PREDNISONE [Concomitant]
     Active Substance: PREDNISONE
     Route: 048
  641. CAFFEINE;DIHYDROCODEINE;PARACETAMOL [Concomitant]
     Indication: Product used for unknown indication
  642. ALENDRONATE SODIUM\CHOLECALCIFEROL [Concomitant]
     Active Substance: ALENDRONATE SODIUM\CHOLECALCIFEROL
     Indication: Rheumatoid arthritis
  643. ALENDRONATE SODIUM\CHOLECALCIFEROL [Concomitant]
     Active Substance: ALENDRONATE SODIUM\CHOLECALCIFEROL
     Route: 048
  644. ALENDRONATE SODIUM\CHOLECALCIFEROL [Concomitant]
     Active Substance: ALENDRONATE SODIUM\CHOLECALCIFEROL
  645. ALENDRONIC ACID [Concomitant]
     Active Substance: ALENDRONIC ACID
     Indication: Rheumatoid arthritis
  646. ALENDRONIC ACID [Concomitant]
     Active Substance: ALENDRONIC ACID
     Route: 048
  647. APREMILAST [Concomitant]
     Active Substance: APREMILAST
     Indication: Product used for unknown indication
  648. APREPITANT [Concomitant]
     Active Substance: APREPITANT
     Indication: Product used for unknown indication
     Route: 048
  649. APREPITANT [Concomitant]
     Active Substance: APREPITANT
  650. APREPITANT [Concomitant]
     Active Substance: APREPITANT
     Route: 042
  651. APREPITANT [Concomitant]
     Active Substance: APREPITANT
  652. APREPITANT [Concomitant]
     Active Substance: APREPITANT
  653. APREPITANT [Concomitant]
     Active Substance: APREPITANT
     Route: 048
  654. APREPITANT [Concomitant]
     Active Substance: APREPITANT
  655. APREPITANT [Concomitant]
     Active Substance: APREPITANT
  656. CERTOLIZUMAB PEGOL [Concomitant]
     Active Substance: CERTOLIZUMAB PEGOL
     Indication: Rheumatoid arthritis
     Route: 048
  657. CERTOLIZUMAB PEGOL [Concomitant]
     Active Substance: CERTOLIZUMAB PEGOL
     Route: 058
  658. GOLIMUMAB [Concomitant]
     Active Substance: GOLIMUMAB
     Indication: Rheumatoid arthritis
     Route: 058
  659. GOLIMUMAB [Concomitant]
     Active Substance: GOLIMUMAB
     Route: 058
  660. GOLIMUMAB [Concomitant]
     Active Substance: GOLIMUMAB
     Route: 042
  661. GOLIMUMAB [Concomitant]
     Active Substance: GOLIMUMAB
     Route: 052
  662. GOLIMUMAB [Concomitant]
     Active Substance: GOLIMUMAB
     Route: 058
  663. GOLIMUMAB [Concomitant]
     Active Substance: GOLIMUMAB
  664. CETIRIZINE HYDROCHLORIDE [Concomitant]
     Active Substance: CETIRIZINE HYDROCHLORIDE
     Indication: Rheumatoid arthritis
     Route: 048
  665. CETIRIZINE HYDROCHLORIDE [Concomitant]
     Active Substance: CETIRIZINE HYDROCHLORIDE
     Route: 048
  666. CETIRIZINE HYDROCHLORIDE [Concomitant]
     Active Substance: CETIRIZINE HYDROCHLORIDE
     Route: 048
  667. CETIRIZINE HYDROCHLORIDE [Concomitant]
     Active Substance: CETIRIZINE HYDROCHLORIDE
     Route: 048
  668. CETIRIZINE HYDROCHLORIDE [Concomitant]
     Active Substance: CETIRIZINE HYDROCHLORIDE
  669. CETIRIZINE HYDROCHLORIDE [Concomitant]
     Active Substance: CETIRIZINE HYDROCHLORIDE
  670. CETIRIZINE HYDROCHLORIDE [Concomitant]
     Active Substance: CETIRIZINE HYDROCHLORIDE
  671. CETIRIZINE HYDROCHLORIDE [Concomitant]
     Active Substance: CETIRIZINE HYDROCHLORIDE
     Route: 048
  672. CETIRIZINE HYDROCHLORIDE [Concomitant]
     Active Substance: CETIRIZINE HYDROCHLORIDE
     Route: 042
  673. CETIRIZINE HYDROCHLORIDE [Concomitant]
     Active Substance: CETIRIZINE HYDROCHLORIDE
  674. CETIRIZINE HYDROCHLORIDE [Concomitant]
     Active Substance: CETIRIZINE HYDROCHLORIDE
  675. CETIRIZINE HYDROCHLORIDE [Concomitant]
     Active Substance: CETIRIZINE HYDROCHLORIDE
     Route: 048
  676. CETIRIZINE HYDROCHLORIDE [Concomitant]
     Active Substance: CETIRIZINE HYDROCHLORIDE
     Route: 048
  677. CETIRIZINE HYDROCHLORIDE [Concomitant]
     Active Substance: CETIRIZINE HYDROCHLORIDE
  678. CETIRIZINE HYDROCHLORIDE [Concomitant]
     Active Substance: CETIRIZINE HYDROCHLORIDE
     Route: 042
  679. CETIRIZINE HYDROCHLORIDE [Concomitant]
     Active Substance: CETIRIZINE HYDROCHLORIDE
  680. HYDROCORTISONE [Concomitant]
     Active Substance: HYDROCORTISONE
     Indication: Rheumatoid arthritis
     Route: 058
  681. ISOPROPYL ALCOHOL [Concomitant]
     Active Substance: ISOPROPYL ALCOHOL
     Indication: Product used for unknown indication
     Dosage: LIQUID TOPICAL
  682. MARVELON [Concomitant]
     Active Substance: DESOGESTREL\ETHINYL ESTRADIOL
     Indication: Product used for unknown indication
  683. MARVELON [Concomitant]
     Active Substance: DESOGESTREL\ETHINYL ESTRADIOL
     Indication: Product used for unknown indication
  684. PANTOPRAZOLE SODIUM [Concomitant]
     Active Substance: PANTOPRAZOLE SODIUM
     Indication: Product used for unknown indication
  685. PANTOPRAZOLE SODIUM [Concomitant]
     Active Substance: PANTOPRAZOLE SODIUM
     Indication: Product used for unknown indication
  686. PSEUDOEPHEDRINE HYDROCHLORIDE [Concomitant]
     Active Substance: PSEUDOEPHEDRINE HYDROCHLORIDE
     Indication: Rheumatoid arthritis
  687. PSEUDOEPHEDRINE HYDROCHLORIDE [Concomitant]
     Active Substance: PSEUDOEPHEDRINE HYDROCHLORIDE
  688. PSEUDOEPHEDRINE HYDROCHLORIDE [Concomitant]
     Active Substance: PSEUDOEPHEDRINE HYDROCHLORIDE
  689. PSEUDOEPHEDRINE HYDROCHLORIDE [Concomitant]
     Active Substance: PSEUDOEPHEDRINE HYDROCHLORIDE
  690. CETIRIZINE HYDROCHLORIDE [Concomitant]
     Active Substance: CETIRIZINE HYDROCHLORIDE
     Indication: Rheumatoid arthritis
  691. TOCILIZUMAB [Concomitant]
     Active Substance: TOCILIZUMAB
     Indication: Rheumatoid arthritis
  692. TOCILIZUMAB [Concomitant]
     Active Substance: TOCILIZUMAB
     Route: 042
  693. TOFACITINIB CITRATE [Concomitant]
     Active Substance: TOFACITINIB CITRATE
     Indication: Product used for unknown indication
  694. TOFACITINIB CITRATE [Concomitant]
     Active Substance: TOFACITINIB CITRATE
  695. TOFACITINIB CITRATE [Concomitant]
     Active Substance: TOFACITINIB CITRATE
  696. TYLENOL [Concomitant]
     Active Substance: ACETAMINOPHEN
     Indication: Product used for unknown indication
  697. USTEKINUMAB [Concomitant]
     Active Substance: USTEKINUMAB
     Indication: Psoriatic arthropathy
     Route: 058
  698. VITAMIN D3 [Concomitant]
     Active Substance: CHOLECALCIFEROL
     Indication: Product used for unknown indication
  699. ZOPICLONE [Concomitant]
     Active Substance: ZOPICLONE
     Indication: Product used for unknown indication
  700. CELECOXIB [Concomitant]
     Active Substance: CELECOXIB
     Indication: Product used for unknown indication
  701. CELECOXIB [Concomitant]
     Active Substance: CELECOXIB

REACTIONS (3)
  - Death [Fatal]
  - Prescribed underdose [Unknown]
  - Off label use [Unknown]
